FAERS Safety Report 4335403-7 (Version None)
Quarter: 2004Q2

REPORT INFORMATION
  Report Type: 
  Country: None (occurrence: None)
  Receive Date: 20040409
  Receipt Date: 20031224
  Transmission Date: 20050107
  Serious: Yes (Other)
  Sender: FDA-Public Use
  Company Number: 12464699

PATIENT
  Age: 7 Year
  Sex: Male

DRUGS (3)
  1. PARAPLATIN [Suspect]
     Indication: BURKITT'S LYMPHOMA
  2. VP-16 [Suspect]
     Indication: BURKITT'S LYMPHOMA
  3. MELPHALAN [Suspect]
     Indication: BURKITT'S LYMPHOMA

REACTIONS (2)
  - CYSTITIS HAEMORRHAGIC [None]
  - HERPES ZOSTER [None]
